FAERS Safety Report 4467669-7 (Version None)
Quarter: 2004Q4

REPORT INFORMATION
  Report Type: 
  Country: None (occurrence: None)
  Receive Date: 20041001
  Receipt Date: 20040923
  Transmission Date: 20050328
  Serious: Yes (Hospitalization)
  Sender: FDA-Public Use
  Company Number: 2004UW19720

PATIENT
  Age: 76 Year
  Sex: Female
  Weight: 57 kg

DRUGS (13)
  1. IRESSA [Suspect]
     Indication: NON-SMALL CELL LUNG CANCER
     Dosage: 250 MG QD PO
     Route: 048
     Dates: start: 20040310, end: 20040921
  2. FASLODEX [Suspect]
     Indication: NON-SMALL CELL LUNG CANCER
     Dosage: 250 MG MONTH IM
     Route: 030
     Dates: start: 20040310, end: 20040825
  3. TOPROL-XL [Concomitant]
  4. NORVASC [Concomitant]
  5. HYDROCHLOROTHIAZIDE [Concomitant]
  6. COZAAR [Concomitant]
  7. ASPIRIN [Concomitant]
  8. VITAMIN E [Concomitant]
  9. CITRUCEL [Concomitant]
  10. MULTI-VITAMINS [Concomitant]
  11. VITAMIN C [Concomitant]
  12. FOLIC ACID [Concomitant]
  13. PREDNISONE [Concomitant]

REACTIONS (6)
  - ACTIVITIES OF DAILY LIVING IMPAIRED [None]
  - CEREBROVASCULAR ACCIDENT [None]
  - DIZZINESS [None]
  - HEADACHE [None]
  - HYPOREFLEXIA [None]
  - VOMITING [None]
